FAERS Safety Report 17737478 (Version 1)
Quarter: 2020Q2

REPORT INFORMATION
  Report Type: Spontaneous
  Country: DE (occurrence: DE)
  Receive Date: 20200504
  Receipt Date: 20200504
  Transmission Date: 20200714
  Serious: Yes (Other)
  Sender: FDA-Public Use
  Company Number: DE-AUROBINDO-AUR-APL-2020-021468

PATIENT
  Sex: Female

DRUGS (17)
  1. CANDESARTAN. [Suspect]
     Active Substance: CANDESARTAN
     Dosage: 4 MILLIGRAM, ONCE A DAY
     Route: 065
  2. BISOPROLOL [Suspect]
     Active Substance: BISOPROLOL
     Indication: PRODUCT USED FOR UNKNOWN INDICATION
     Dosage: 2.5 MILLIGRAM
     Route: 065
  3. NIFEDIPIN [Suspect]
     Active Substance: NIFEDIPINE
     Dosage: 20 MILLIGRAM PER MILLILITRE,TOTAL
     Route: 065
     Dates: start: 20200314
  4. BISOPROLOL [Suspect]
     Active Substance: BISOPROLOL
     Dosage: 1 DOSAGE FORM, ONCE A DAY,0.5 DF, BID (2.5 MG)
     Route: 065
     Dates: start: 20200413
  5. NIFEDIPIN [Suspect]
     Active Substance: NIFEDIPINE
     Indication: PRODUCT USED FOR UNKNOWN INDICATION
     Dosage: 20 MILLIGRAM PER MILLILITRE
     Route: 065
     Dates: start: 20200311
  6. NIFEDIPIN [Suspect]
     Active Substance: NIFEDIPINE
     Dosage: 20 MILLIGRAM PER MILLILITRE
     Route: 065
     Dates: start: 20200411
  7. LIXIANA [Suspect]
     Active Substance: EDOXABAN TOSYLATE
     Dosage: 60 MILLIGRAM, ONCE A DAY
     Route: 065
     Dates: start: 20200413
  8. SORMODREN [Suspect]
     Active Substance: BORNAPRINE HYDROCHLORIDE
     Indication: PRODUCT USED FOR UNKNOWN INDICATION
     Dosage: 4 MILLIGRAM
     Route: 065
     Dates: start: 20200411
  9. MULTAQ [Suspect]
     Active Substance: DRONEDARONE
     Indication: PRODUCT USED FOR UNKNOWN INDICATION
     Dosage: 400 MILLIGRAM
     Route: 065
     Dates: start: 20200411
  10. NIFEDIPIN [Suspect]
     Active Substance: NIFEDIPINE
     Dosage: 20 MILLIGRAM PER MILLILITRE,TOTAL
     Route: 065
     Dates: start: 20200413
  11. SORMODREN [Suspect]
     Active Substance: BORNAPRINE HYDROCHLORIDE
     Dosage: 1 DOSAGE FORM, ONCE A DAY,0.5 DF, BID (4 MG)
     Route: 065
     Dates: start: 20200413
  12. ATORVASTATIN [Suspect]
     Active Substance: ATORVASTATIN
     Indication: PRODUCT USED FOR UNKNOWN INDICATION
     Dosage: 40 MILLIGRAM
     Route: 065
     Dates: start: 20200411
  13. MULTAQ [Suspect]
     Active Substance: DRONEDARONE
     Dosage: 400 MILLIGRAM, ONCE A DAY
     Route: 065
     Dates: start: 20200413
  14. ATORVASTATIN [Suspect]
     Active Substance: ATORVASTATIN
     Dosage: 40 MILLIGRAM, ONCE A DAY
     Route: 065
     Dates: start: 20200413
  15. LIXIANA [Suspect]
     Active Substance: EDOXABAN TOSYLATE
     Indication: PRODUCT USED FOR UNKNOWN INDICATION
     Dosage: 60 MILLIGRAM
     Route: 065
     Dates: start: 20200411
  16. CANDESARTAN. [Suspect]
     Active Substance: CANDESARTAN
     Indication: PRODUCT USED FOR UNKNOWN INDICATION
     Dosage: 8 MILLIGRAM, ONCE A DAY
     Route: 065
     Dates: start: 20200407
  17. CANDESARTAN. [Suspect]
     Active Substance: CANDESARTAN
     Dosage: 0.5 DOSAGE FORM, ONCE A DAY
     Route: 065
     Dates: start: 20200407

REACTIONS (2)
  - Blood pressure systolic increased [Unknown]
  - Drug interaction [Unknown]
